FAERS Safety Report 6832856-7 (Version None)
Quarter: 2010Q3

REPORT INFORMATION
  Report Type: 
  Country: None (occurrence: None)
  Receive Date: 20100712
  Receipt Date: 20070316
  Transmission Date: 20110219
  Serious: No
  Sender: FDA-Public Use
  Company Number: US-PFIZER INC-2007022686

PATIENT
  Sex: Female
  Weight: 68.04 kg

DRUGS (6)
  1. CHANTIX [Suspect]
     Indication: SMOKING CESSATION THERAPY
     Route: 048
     Dates: start: 20070301
  2. NAPROXEN [Concomitant]
  3. NEXIUM [Concomitant]
  4. BONTRIL [Concomitant]
  5. NEURONTIN [Concomitant]
  6. SKELAXIN [Concomitant]

REACTIONS (1)
  - TOBACCO USER [None]
